FAERS Safety Report 8275856-5 (Version None)
Quarter: 2012Q2

REPORT INFORMATION
  Report Type: 
  Country: None (occurrence: None)
  Receive Date: 20120410
  Receipt Date: 20120410
  Transmission Date: 20120825
  Serious: Yes (Life-Threatening)
  Sender: FDA-Public Use
  Company Number: None

PATIENT
  Age: 25 Year
  Sex: Male
  Weight: 83.2 kg

DRUGS (1)
  1. CLINDAMYCIN [Suspect]
     Indication: INFECTIOUS MONONUCLEOSIS
     Dosage: 450 MG QID PO
     Route: 048
     Dates: start: 20120226, end: 20120305

REACTIONS (2)
  - ANGIOEDEMA [None]
  - RASH MACULO-PAPULAR [None]
